FAERS Safety Report 7326210-1 (Version None)
Quarter: 2011Q1

REPORT INFORMATION
  Report Type: 
  Country: None (occurrence: None)
  Receive Date: 20110302
  Receipt Date: 20110221
  Transmission Date: 20110831
  Serious: Yes (Hospitalization)
  Sender: FDA-Public Use
  Company Number: A0849257A

PATIENT
  Sex: Male

DRUGS (1)
  1. AVANDIA [Suspect]
     Indication: DIABETES MELLITUS
     Dosage: 4MG TWICE PER DAY
     Route: 048
     Dates: start: 20010615, end: 20060519

REACTIONS (4)
  - VASCULAR GRAFT [None]
  - RENAL VESSEL DISORDER [None]
  - CARDIAC FAILURE CONGESTIVE [None]
  - VENOUS OCCLUSION [None]
